FAERS Safety Report 9911350 (Version 2)
Quarter: 2014Q1

REPORT INFORMATION
  Report Type: Spontaneous
  Country: US (occurrence: US)
  Receive Date: 20140219
  Receipt Date: 20140219
  Transmission Date: 20141002
  Serious: Yes (Hospitalization)
  Sender: FDA-Public Use
  Company Number: US-GILEAD-2012-0055412

PATIENT
  Sex: Female

DRUGS (3)
  1. LETAIRIS [Suspect]
     Indication: PULMONARY HYPERTENSION
     Dosage: 5 MG, UNK
     Route: 048
     Dates: start: 20120220, end: 201205
  2. LETAIRIS [Suspect]
     Indication: CREST SYNDROME
     Dosage: 10 UNK, UNK
     Route: 048
     Dates: start: 20120314
  3. LETAIRIS [Suspect]
     Indication: SCLERODERMA

REACTIONS (2)
  - Oedema peripheral [Unknown]
  - Fluid overload [Unknown]
